FAERS Safety Report 5154792-7 (Version None)
Quarter: 2006Q4

REPORT INFORMATION
  Report Type: 
  Country: None (occurrence: None)
  Receive Date: 20061115
  Receipt Date: 20061115
  Transmission Date: 20070319
  Serious: Yes (Other)
  Sender: FDA-Public Use
  Company Number: None

PATIENT
  Sex: Male
  Weight: 74.8435 kg

DRUGS (2)
  1. METHADONE 10 MG ROXANNE [Suspect]
     Indication: SPINAL FRACTURE
     Dosage: 13 PILLS TWICE PER DAY PO
     Route: 048
     Dates: start: 20010907, end: 20060722
  2. METHADOSE [Suspect]
     Dosage: 13 PILLS TWICE OER DAY PO
     Route: 048
     Dates: start: 20060722, end: 20060822

REACTIONS (3)
  - DRUG EFFECT DECREASED [None]
  - DRUG WITHDRAWAL SYNDROME [None]
  - PHARMACEUTICAL PRODUCT COMPLAINT [None]
